FAERS Safety Report 6681258-5 (Version None)
Quarter: 2010Q2

REPORT INFORMATION
  Report Type: 
  Country: None (occurrence: None)
  Receive Date: 20100414
  Receipt Date: 20100221
  Transmission Date: 20101027
  Serious: No
  Sender: FDA-Public Use
  Company Number: US-KINGPHARMUSA00001-K201000205

PATIENT
  Age: 55 Year
  Sex: Male
  Weight: 95.238 kg

DRUGS (7)
  1. SKELAXIN [Suspect]
     Indication: MUSCULOSKELETAL PAIN
     Dosage: 800 MG, 2-3/WK, PRN
     Route: 048
     Dates: start: 20090901, end: 20100101
  2. SKELAXIN [Suspect]
     Indication: BACK PAIN
     Dosage: 800 MG, QD, PRN
     Route: 048
     Dates: start: 20100101
  3. XANAX [Concomitant]
     Indication: ANXIETY
     Dosage: UNK
  4. EFFEXOR [Concomitant]
     Indication: ANXIETY
     Dosage: UNK
  5. NADOLOL [Concomitant]
     Indication: HYPERTENSION
     Dosage: UNK
  6. DIOVAN [Concomitant]
     Indication: HYPERTENSION
     Dosage: UNK
  7. NAMENDA [Concomitant]
     Indication: MIGRAINE
     Dosage: UNK

REACTIONS (3)
  - FAECES DISCOLOURED [None]
  - FATIGUE [None]
  - SOMNOLENCE [None]
